FAERS Safety Report 8784097 (Version 1)
Quarter: 2012Q4

REPORT INFORMATION
  Report Type: 
  Country: US (occurrence: US)
  Receive Date: 20120913
  Receipt Date: 20120913
  Transmission Date: 20130627
  Serious: No
  Sender: FDA-Public Use
  Company Number: US-VERTEX PHARMACEUTICAL INC.-AE-2012-009389

PATIENT
  Age: 54 Year
  Sex: Female
  Weight: 75.46 kg

DRUGS (6)
  1. INCIVEK [Suspect]
     Indication: HEPATITIS C
     Route: 048
     Dates: start: 20120601
  2. PEGASYS [Concomitant]
     Indication: HEPATITIS C
     Route: 058
     Dates: start: 20120601
  3. RIBAVIRIN [Concomitant]
     Indication: HEPATITIS C
     Route: 048
     Dates: start: 20120601
  4. OXYCODONE [Concomitant]
     Route: 048
  5. IBUPROFEN [Concomitant]
     Route: 048
  6. FLEXERIL [Concomitant]
     Route: 048

REACTIONS (1)
  - Drug dose omission [Recovered/Resolved]
